FAERS Safety Report 19369320 (Version 1)
Quarter: 2021Q2

REPORT INFORMATION
  Report Type: Spontaneous
  Country: US (occurrence: US)
  Receive Date: 20210602
  Receipt Date: 20210602
  Transmission Date: 20210717
  Serious: No
  Sender: FDA-Public Use
  Company Number: US-ROCHE-2714211

PATIENT

DRUGS (1)
  1. OCREVUS [Suspect]
     Active Substance: OCRELIZUMAB
     Indication: PRODUCT USED FOR UNKNOWN INDICATION
     Dosage: FIRST HALF INFUSION
     Route: 065

REACTIONS (4)
  - Abdominal pain upper [Unknown]
  - Asthenia [Unknown]
  - Influenza like illness [Unknown]
  - Pharyngeal swelling [Unknown]
